FAERS Safety Report 7577103-6 (Version None)
Quarter: 2011Q2

REPORT INFORMATION
  Report Type: 
  Country: None (occurrence: None)
  Receive Date: 20110628
  Receipt Date: 20110603
  Transmission Date: 20111010
  Serious: Yes (Hospitalization, Other)
  Sender: FDA-Public Use
  Company Number: US-BAYER-201030381NA

PATIENT
  Age: 21 Year
  Sex: Female
  Weight: 102.95 kg

DRUGS (4)
  1. IBUPROFEN [Concomitant]
  2. YAZ [Suspect]
     Indication: ORAL CONTRACEPTION
     Dosage: UNK UNK, UNK
     Route: 048
     Dates: start: 20070101, end: 20100101
  3. TYLENOL-500 [Concomitant]
  4. ORAL CONTRACEPTIVE NOS [Concomitant]

REACTIONS (7)
  - CHOLECYSTITIS CHRONIC [None]
  - PAIN [None]
  - VOMITING [None]
  - GALLBLADDER DISORDER [None]
  - NAUSEA [None]
  - CHOLESTEROSIS [None]
  - CHOLELITHIASIS [None]
